FAERS Safety Report 15763172 (Version 6)
Quarter: 2019Q1

REPORT INFORMATION
  Report Type: Report from Study
  Country: JP (occurrence: JP)
  Receive Date: 20181226
  Receipt Date: 20190205
  Transmission Date: 20190417
  Serious: Yes (Hospitalization)
  Sender: FDA-Public Use
  Company Number: JP-AMGEN-JPNCT2018184034

PATIENT
  Age: 55 Year
  Sex: Female
  Weight: 60.5 kg

DRUGS (17)
  1. NORMAL SALINE [Concomitant]
     Active Substance: SODIUM CHLORIDE
     Dosage: 250 ML, UNK
     Route: 042
     Dates: start: 20180323
  2. LANSOPRAZOLE. [Concomitant]
     Active Substance: LANSOPRAZOLE
     Dosage: 15 MG, UNK
     Route: 048
     Dates: start: 20180315
  3. SINGULAIR [Concomitant]
     Active Substance: MONTELUKAST SODIUM
     Dosage: 10 MG, UNK
     Route: 048
     Dates: start: 20180314
  4. CARFILZOMIB [Suspect]
     Active Substance: CARFILZOMIB
     Indication: PLASMA CELL MYELOMA
     Dosage: 67 MG, PER CHEMO REGIM
     Route: 042
     Dates: start: 20180314
  5. CALONAL [Concomitant]
     Active Substance: ACETAMINOPHEN
     Dosage: 400-800 MG, UNK
     Route: 048
     Dates: start: 20180314, end: 20181220
  6. MEDROL [Concomitant]
     Active Substance: METHYLPREDNISOLONE
     Dosage: 20 MG, UNK
     Route: 048
     Dates: start: 20180316
  7. SULFAMETHOXAZOLE W/TRIMETHOPRIM [Concomitant]
     Active Substance: SULFAMETHOXAZOLE\TRIMETHOPRIM
     Dosage: 2 UNK, UNK
     Route: 048
     Dates: start: 20180316
  8. SODIUM GUALENATE HYDRATE [Concomitant]
     Active Substance: SODIUM GUALENATE MONOHYDRATE
     Dosage: 1 UNK, UNK
     Dates: start: 20180405
  9. DARATUMUMAB [Suspect]
     Active Substance: DARATUMUMAB
     Indication: PLASMA CELL MYELOMA
     Dosage: 976 MG, PER CHEMO REGIM
     Route: 042
     Dates: start: 20180314
  10. DARATUMUMAB [Suspect]
     Active Substance: DARATUMUMAB
     Dosage: 976 MG, PER CHEMO REGIM
     Route: 042
  11. ADJUST-A [Concomitant]
     Active Substance: SENNA LEAF\SENNOSIDES\SENNOSIDES A AND B
     Dosage: 120 MG, UNK
     Dates: start: 20180704
  12. ACETAMINOPHEN. [Concomitant]
     Active Substance: ACETAMINOPHEN
     Indication: PREMEDICATION
     Dosage: UNK
     Dates: start: 20181219
  13. DEXAMETHASONE. [Suspect]
     Active Substance: DEXAMETHASONE
     Indication: PLASMA CELL MYELOMA
     Dosage: 19.8-20 MG, UNK
     Route: 065
     Dates: start: 20180314
  14. ZOVIRAX [Concomitant]
     Active Substance: ACYCLOVIR
     Dosage: 200 MG, UNK
     Route: 048
     Dates: start: 20180315
  15. CARFILZOMIB [Suspect]
     Active Substance: CARFILZOMIB
     Dosage: UNK,UNK PER CHEMO REGIM
     Route: 042
     Dates: start: 20180412
  16. ZOLEDRONIC ACID [Concomitant]
     Active Substance: ZOLEDRONIC ACID
     Dosage: 4 MG, UNK
     Dates: start: 20150826
  17. RESTAMIN [Concomitant]
     Active Substance: DIPHENHYDRAMINE
     Dosage: 30 MG, UNK
     Route: 048
     Dates: start: 20180314

REACTIONS (1)
  - Hepatic function abnormal [Recovered/Resolved]

NARRATIVE: CASE EVENT DATE: 20181220
